FAERS Safety Report 16187651 (Version 2)
Quarter: 2019Q2

REPORT INFORMATION
  Report Type: Spontaneous
  Country: US (occurrence: US)
  Receive Date: 20190412
  Receipt Date: 20190516
  Transmission Date: 20190711
  Serious: Yes (Life-Threatening, Hospitalization, Disabling, Other)
  Sender: FDA-Public Use
  Company Number: US-009507513-1904USA001872

PATIENT
  Sex: Male

DRUGS (2)
  1. PRINIVIL [Suspect]
     Active Substance: LISINOPRIL
     Indication: HYPERTENSION
     Dosage: 25 MG ONCE DAILY
     Route: 048
     Dates: start: 201803, end: 201808
  2. ASPIRIN. [Concomitant]
     Active Substance: ASPIRIN

REACTIONS (7)
  - Heart injury [Not Recovered/Not Resolved]
  - Swelling face [Recovered/Resolved]
  - Tachycardia [Not Recovered/Not Resolved]
  - Mouth swelling [Recovered/Resolved]
  - Poor quality sleep [Unknown]
  - Dizziness [Unknown]
  - Anxiety [Unknown]

NARRATIVE: CASE EVENT DATE: 2018
